FAERS Safety Report 24908428 (Version 1)
Quarter: 2025Q1

REPORT INFORMATION
  Report Type: Spontaneous
  Country: US (occurrence: US)
  Receive Date: 20250131
  Receipt Date: 20250131
  Transmission Date: 20250409
  Serious: No
  Sender: ELI LILLY AND COMPANY
  Company Number: US-ELI_LILLY_AND_COMPANY-US202501009441

PATIENT
  Age: 44 Year
  Sex: Male

DRUGS (1)
  1. EMGALITY [Suspect]
     Active Substance: GALCANEZUMAB-GNLM
     Indication: Vestibular migraine
     Route: 058
     Dates: start: 20250112

REACTIONS (6)
  - Vision blurred [Not Recovered/Not Resolved]
  - Oscillopsia [Not Recovered/Not Resolved]
  - Product storage error [Unknown]
  - Pruritus [Not Recovered/Not Resolved]
  - Vertigo [Unknown]
  - Urticaria [Unknown]

NARRATIVE: CASE EVENT DATE: 20250112
